FAERS Safety Report 17309498 (Version 2)
Quarter: 2020Q1

REPORT INFORMATION
  Report Type: Report from Study
  Country: BR (occurrence: BR)
  Receive Date: 20200123
  Receipt Date: 20200204
  Transmission Date: 20200409
  Serious: Yes (Hospitalization, Other)
  Sender: FDA-Public Use
  Company Number: NVSC2019BR079146

PATIENT
  Age: 34 Year
  Sex: Female

DRUGS (11)
  1. COSENTYX [Suspect]
     Active Substance: SECUKINUMAB
     Dosage: UNK
     Route: 058
     Dates: start: 20191023
  2. COSENTYX [Suspect]
     Active Substance: SECUKINUMAB
     Dosage: 150 MG/ML, UNKNOWN
     Route: 058
  3. DORENE [Concomitant]
     Active Substance: PREGABALIN
     Indication: PAIN
     Dosage: 2 DF(150MG), QD
     Route: 048
  4. COSENTYX [Suspect]
     Active Substance: SECUKINUMAB
     Dosage: 150 MG/ML, UNKNOWN
     Route: 058
  5. DIMORF [Concomitant]
     Active Substance: MORPHINE SULFATE
     Indication: PAIN
     Dosage: 3 DF(10MG), QD
     Route: 048
  6. ARCOXIA [Concomitant]
     Active Substance: ETORICOXIB
     Indication: PAIN
     Dosage: 1 DF(90MG), QD
     Route: 048
  7. COSENTYX [Suspect]
     Active Substance: SECUKINUMAB
     Dosage: UNK
     Route: 058
     Dates: start: 20190828
  8. COSENTYX [Suspect]
     Active Substance: SECUKINUMAB
     Dosage: UNK
     Route: 058
     Dates: start: 20190925
  9. COSENTYX [Suspect]
     Active Substance: SECUKINUMAB
     Dosage: UNK
     Route: 058
     Dates: start: 20191120
  10. CICLOBENZAPRINA [Concomitant]
     Indication: PRODUCT USED FOR UNKNOWN INDICATION
     Dosage: 1 DF(10MG), QD
     Route: 048
  11. COSENTYX [Suspect]
     Active Substance: SECUKINUMAB
     Indication: ANKYLOSING SPONDYLITIS
     Dosage: 150 MG/ML, UNKNOWN
     Route: 065
     Dates: start: 20190313

REACTIONS (21)
  - Pharyngeal swelling [Unknown]
  - Arthralgia [Recovering/Resolving]
  - Dizziness [Unknown]
  - Myofascial pain syndrome [Unknown]
  - Gait disturbance [Not Recovered/Not Resolved]
  - Back pain [Recovering/Resolving]
  - Dengue haemorrhagic fever [Unknown]
  - Oropharyngeal pain [Recovering/Resolving]
  - Nasal congestion [Recovering/Resolving]
  - Nausea [Unknown]
  - Spinal pain [Recovering/Resolving]
  - Osteoarthropathy [Unknown]
  - Therapeutic product effect decreased [Not Recovered/Not Resolved]
  - Ankylosing spondylitis [Not Recovered/Not Resolved]
  - Pain in extremity [Recovering/Resolving]
  - Pyrexia [Unknown]
  - Joint effusion [Unknown]
  - Nasopharyngitis [Unknown]
  - Arthritis [Unknown]
  - Pain [Recovering/Resolving]
  - Sacroiliitis [Unknown]

NARRATIVE: CASE EVENT DATE: 20190828
